FAERS Safety Report 5344147-4 (Version None)
Quarter: 2007Q2

REPORT INFORMATION
  Report Type: 
  Country: None (occurrence: None)
  Receive Date: 20070604
  Receipt Date: 20070522
  Transmission Date: 20071010
  Serious: Yes (Hospitalization)
  Sender: FDA-Public Use
  Company Number: US-MERCK-0705USA05650

PATIENT
  Age: 57 Year
  Sex: Male

DRUGS (1)
  1. INDOCIN [Suspect]
     Route: 048

REACTIONS (2)
  - DIVERTICULUM [None]
  - LARGE INTESTINAL HAEMORRHAGE [None]
